FAERS Safety Report 22789721 (Version 3)
Quarter: 2023Q4

REPORT INFORMATION
  Report Type: Spontaneous
  Country: US (occurrence: US)
  Receive Date: 20230804
  Receipt Date: 20231020
  Transmission Date: 20240110
  Serious: No
  Sender: FDA-Public Use
  Company Number: US-PFIZER INC-PV202300134686

PATIENT
  Age: 66 Year
  Sex: Female

DRUGS (1)
  1. NURTEC ODT [Suspect]
     Active Substance: RIMEGEPANT SULFATE
     Indication: Migraine
     Dosage: 75 MG, ALTERNATE DAY (TAKE 1 TABLET EVERY 48 HOURS)
     Route: 048

REACTIONS (3)
  - Drug ineffective [Unknown]
  - Sinusitis [Not Recovered/Not Resolved]
  - Constipation [Unknown]
